FAERS Safety Report 5719949-2 (Version None)
Quarter: 2008Q2

REPORT INFORMATION
  Report Type: 
  Country: None (occurrence: None)
  Receive Date: 20080425
  Receipt Date: 20080425
  Transmission Date: 20081010
  Serious: Yes (Hospitalization)
  Sender: FDA-Public Use
  Company Number: None

PATIENT
  Age: 40 Year
  Sex: Male

DRUGS (2)
  1. METHOCARBAMOL [Suspect]
     Dosage: 500 MG TID PO
     Route: 048
     Dates: start: 20070409, end: 20080311
  2. OXYCODONE AND ACETAMINOPHEN [Suspect]
     Dates: start: 20080310, end: 20080311

REACTIONS (7)
  - DIZZINESS [None]
  - FLUSHING [None]
  - LOSS OF CONSCIOUSNESS [None]
  - MOVEMENT DISORDER [None]
  - NAUSEA [None]
  - SYNCOPE [None]
  - UNEVALUABLE EVENT [None]
